FAERS Safety Report 7873796-4 (Version None)
Quarter: 2011Q4

REPORT INFORMATION
  Report Type: 
  Country: None (occurrence: None)
  Receive Date: 20111017
  Receipt Date: 20101221
  Transmission Date: 20120403
  Serious: Yes (Other)
  Sender: FDA-Public Use
  Company Number: 2011S1000010

PATIENT
  Sex: Female

DRUGS (1)
  1. DARVOCET-N 100 [Suspect]
     Dosage: ORAL
     Route: 048
     Dates: start: 20000101, end: 20100101

REACTIONS (1)
  - CARDIAC FAILURE CONGESTIVE [None]
